FAERS Safety Report 9386271 (Version 1)
Quarter: 2013Q3

REPORT INFORMATION
  Report Type: Spontaneous
  Country: SE (occurrence: SE)
  Receive Date: 20130708
  Receipt Date: 20130708
  Transmission Date: 20140515
  Serious: Yes (Life-Threatening, Other)
  Sender: FDA-Public Use
  Company Number: SE-AMGEN-SWESP2013047124

PATIENT
  Age: 41 Year
  Sex: Female

DRUGS (7)
  1. ENBREL [Suspect]
     Indication: PRODUCT USED FOR UNKNOWN INDICATION
     Dosage: UNK
     Route: 065
     Dates: start: 2007
  2. ENBREL [Suspect]
     Dosage: UNK
     Route: 065
     Dates: start: 200903, end: 201101
  3. METHOTREXATE SODIUM [Suspect]
     Dosage: UNK
  4. METHOTREXATE SODIUM [Suspect]
     Dosage: UNK
     Dates: end: 201207
  5. HUMIRA [Suspect]
     Dosage: UNK
     Dates: start: 201102, end: 201206
  6. CIMZIA [Suspect]
     Dosage: UNK
     Dates: start: 201207, end: 201210
  7. PREDNISOLON                        /00016201/ [Concomitant]
     Dosage: UNK

REACTIONS (6)
  - Chronic hepatitis [Not Recovered/Not Resolved]
  - Drug effect decreased [Unknown]
  - Arthropathy [Unknown]
  - Soft tissue infection [Recovered/Resolved]
  - Sepsis [Recovered/Resolved]
  - Transaminases increased [Not Recovered/Not Resolved]
